FAERS Safety Report 12099089 (Version 1)
Quarter: 2016Q1

REPORT INFORMATION
  Report Type: Spontaneous
  Country: FR (occurrence: FR)
  Receive Date: 20160222
  Receipt Date: 20160222
  Transmission Date: 20160526
  Serious: Yes (Hospitalization)
  Sender: FDA-Public Use
  Company Number: FR-SA-2016SA030977

PATIENT
  Age: 57 Year
  Sex: Male

DRUGS (12)
  1. ARAVA [Suspect]
     Active Substance: LEFLUNOMIDE
     Route: 048
     Dates: start: 20150827, end: 20160106
  2. FOSCAVIR [Suspect]
     Active Substance: FOSCARNET SODIUM
     Route: 042
     Dates: start: 20150821, end: 20150829
  3. CIFLOX [Concomitant]
     Active Substance: CIPROFLOXACIN
  4. RAPAMUNE [Suspect]
     Active Substance: SIROLIMUS
     Route: 048
     Dates: start: 20150727
  5. DOLIPRANE [Concomitant]
     Active Substance: ACETAMINOPHEN
  6. INEXIUM [Concomitant]
     Active Substance: ESOMEPRAZOLE
  7. ORACILLINE [Concomitant]
     Active Substance: PENICILLIN V
  8. ARAVA [Suspect]
     Active Substance: LEFLUNOMIDE
     Route: 048
     Dates: start: 20160107
  9. DIFFU K [Concomitant]
     Active Substance: POTASSIUM CHLORIDE
  10. IMMUGRIP [Suspect]
     Active Substance: INFLUENZA VIRUS VACCINE
     Indication: INFLUENZA IMMUNISATION
     Route: 030
     Dates: start: 20151120, end: 20151120
  11. ACEBUTOLOL [Concomitant]
     Active Substance: ACEBUTOLOL
  12. LERCANIDIPINE [Concomitant]
     Active Substance: LERCANIDIPINE

REACTIONS (1)
  - Guillain-Barre syndrome [Not Recovered/Not Resolved]

NARRATIVE: CASE EVENT DATE: 201512
